FAERS Safety Report 18427133 (Version 2)
Quarter: 2021Q1

REPORT INFORMATION
  Report Type: Spontaneous
  Country: US (occurrence: US)
  Receive Date: 20201026
  Receipt Date: 20210329
  Transmission Date: 20210419
  Serious: Yes (Other)
  Sender: FDA-Public Use
  Company Number: US-PFIZER INC-2020410311

PATIENT
  Age: 63 Year
  Sex: Female
  Weight: 113.4 kg

DRUGS (7)
  1. OMEGA 3,6,9 [Concomitant]
     Indication: VITAMIN SUPPLEMENTATION
     Dosage: UNK
  2. IBRANCE [Suspect]
     Active Substance: PALBOCICLIB
     Indication: HER2 NEGATIVE BREAST CANCER
     Dosage: 125 MG, CYCLIC (ONE TABLET DAILY FOR 3 WEEKS AND OFF FOR ONE WEEK)
  3. METOPROLOL. [Concomitant]
     Active Substance: METOPROLOL
     Indication: ATRIAL FIBRILLATION
     Dosage: 1.5 DF, 2X/DAY (1 1/2 TABLETS IN THE MORNING AND IN THE EVENING)
     Dates: start: 201905
  4. CALCIUM [Concomitant]
     Active Substance: CALCIUM
     Indication: OSTEOPENIA
     Dosage: 600 MG, 2X/DAY (600 MG. ONCE IN THE MORNING AND ONCE AT NIGHT)
  5. B?COMPLEX [VITAMIN B COMPLEX] [Concomitant]
     Indication: VITAMIN SUPPLEMENTATION
     Dosage: UNK(UNKNOWN OVER THE COUNTER BOTTLE/TAKING FOR YEARS)
  6. FLECAINIDE [Concomitant]
     Active Substance: FLECAINIDE
     Indication: ATRIAL FIBRILLATION
     Dosage: 1.5 DF, 2X/DAY
  7. LETROZOLE. [Concomitant]
     Active Substance: LETROZOLE
     Indication: HORMONE REFRACTORY BREAST CANCER
     Dosage: UNK
     Dates: start: 20190603

REACTIONS (7)
  - Abdominal discomfort [Not Recovered/Not Resolved]
  - Malabsorption [Unknown]
  - Epigastric discomfort [Not Recovered/Not Resolved]
  - Neoplasm progression [Unknown]
  - Swelling [Unknown]
  - Drug dependence [Unknown]
  - Ankle fracture [Unknown]
